FAERS Safety Report 14586053 (Version 2)
Quarter: 2018Q3

REPORT INFORMATION
  Report Type: Report from Study
  Country: CA (occurrence: CA)
  Receive Date: 20180301
  Receipt Date: 20180813
  Transmission Date: 20181010
  Serious: Yes (Other)
  Sender: FDA-Public Use
  Company Number: PHHY2018CA032854

PATIENT
  Age: 50 Year
  Sex: Male

DRUGS (7)
  1. XOLAIR [Suspect]
     Active Substance: OMALIZUMAB
     Indication: CHRONIC SPONTANEOUS URTICARIA
     Dosage: 300 MG, EVERY 4WEEKS
     Route: 058
  2. RUP AL [Concomitant]
     Indication: CHRONIC SPONTANEOUS URTICARIA
     Dosage: 4 DF, QD
     Route: 048
     Dates: start: 201704
  3. PREDNISONE. [Concomitant]
     Active Substance: PREDNISONE
     Indication: CHRONIC SPONTANEOUS URTICARIA
     Dosage: QD
     Route: 048
     Dates: start: 2014, end: 201704
  4. PREDNISONE. [Concomitant]
     Active Substance: PREDNISONE
     Dosage: QD
     Route: 048
     Dates: start: 201704
  5. ZADITEN [Concomitant]
     Active Substance: KETOTIFEN FUMARATE
     Indication: CHRONIC SPONTANEOUS URTICARIA
     Dosage: 1 DF, BID
     Route: 048
     Dates: start: 20180109
  6. MONTELUKAST SODIUM. [Concomitant]
     Active Substance: MONTELUKAST SODIUM
     Indication: CHRONIC SPONTANEOUS URTICARIA
     Dosage: 1 DF, QD
     Route: 048
     Dates: start: 201704
  7. XOLAIR [Suspect]
     Active Substance: OMALIZUMAB
     Indication: CHRONIC SPONTANEOUS URTICARIA
     Dosage: 300 MG, EVERY 4 WEEKS
     Route: 058
     Dates: start: 20180222

REACTIONS (2)
  - Blood pressure systolic increased [Unknown]
  - Urticaria [Unknown]

NARRATIVE: CASE EVENT DATE: 20180222
